FAERS Safety Report 24688950 (Version 1)
Quarter: 2024Q4

REPORT INFORMATION
  Report Type: Spontaneous
  Country: DE (occurrence: DE)
  Receive Date: 20241203
  Receipt Date: 20241203
  Transmission Date: 20250114
  Serious: Yes (Hospitalization)
  Sender: TEVA
  Company Number: DE-TEVA-VS-3270405

PATIENT
  Age: 33 Year
  Sex: Male

DRUGS (7)
  1. DIAZEPAM [Suspect]
     Active Substance: DIAZEPAM
     Indication: Drug abuse
     Route: 048
  2. LORAZEPAM [Suspect]
     Active Substance: LORAZEPAM
     Indication: Drug abuse
     Route: 048
  3. LEVOMETHADONE [Suspect]
     Active Substance: LEVOMETHADONE
     Indication: Drug abuse
     Route: 048
  4. NORDAZEPAM [Suspect]
     Active Substance: NORDAZEPAM
     Indication: Drug abuse
     Route: 048
  5. TEMAZEPAM [Suspect]
     Active Substance: TEMAZEPAM
     Indication: Drug abuse
     Route: 048
  6. DRONABINOL [Suspect]
     Active Substance: DRONABINOL
     Indication: Drug abuse
     Route: 048
  7. OXAZEPAM [Suspect]
     Active Substance: OXAZEPAM
     Indication: Drug abuse
     Route: 048

REACTIONS (2)
  - Drug abuse [Unknown]
  - Aggression [Unknown]
